FAERS Safety Report 7584969-2 (Version None)
Quarter: 2011Q2

REPORT INFORMATION
  Report Type: 
  Country: None (occurrence: None)
  Receive Date: 20110630
  Receipt Date: 20110621
  Transmission Date: 20111010
  Serious: Yes (Hospitalization)
  Sender: FDA-Public Use
  Company Number: JP-ASTRAZENECA-2011SE38583

PATIENT
  Age: 70 Year
  Sex: Male

DRUGS (1)
  1. CANDESARTAN CILEXETIL [Suspect]
     Indication: CARDIAC FAILURE CHRONIC
     Route: 048

REACTIONS (4)
  - SICK SINUS SYNDROME [None]
  - RENAL FAILURE ACUTE [None]
  - HYPERKALAEMIA [None]
  - SHOCK [None]
